FAERS Safety Report 12866179 (Version 1)
Quarter: 2016Q4

REPORT INFORMATION
  Report Type: Spontaneous
  Country: US (occurrence: US)
  Receive Date: 20161020
  Receipt Date: 20161020
  Transmission Date: 20170207
  Serious: No
  Sender: FDA-Public Use
  Company Number: US-GLAXOSMITHKLINE-US2016GSK153869

PATIENT
  Sex: Female
  Weight: 70 kg

DRUGS (1)
  1. VOLTAREN [Suspect]
     Active Substance: DICLOFENAC SODIUM
     Indication: ARTHRITIS
     Dosage: 75 MG, QD

REACTIONS (2)
  - Abdominal pain upper [Unknown]
  - Abdominal discomfort [Unknown]
